FAERS Safety Report 5264640-2 (Version None)
Quarter: 2007Q1

REPORT INFORMATION
  Report Type: 
  Country: None (occurrence: None)
  Receive Date: 20070314
  Receipt Date: 20070227
  Transmission Date: 20070707
  Serious: Yes (Hospitalization)
  Sender: FDA-Public Use
  Company Number: IT-BAYER-200615577GDS

PATIENT
  Age: 66 Year
  Weight: 63 kg

DRUGS (2)
  1. SORAFENIB [Suspect]
     Indication: RENAL CELL CARCINOMA STAGE UNSPECIFIED
     Dosage: TOTAL DAILY DOSE: 800 MG
     Route: 048
     Dates: start: 20061010, end: 20061030
  2. INTERFERON ALPHA 2A [Suspect]
     Indication: RENAL CELL CARCINOMA STAGE UNSPECIFIED
     Route: 058
     Dates: start: 20061010, end: 20061030

REACTIONS (3)
  - NEUTROPENIA [None]
  - PYREXIA [None]
  - SEPSIS [None]
